FAERS Safety Report 5072050-6 (Version None)
Quarter: 2006Q3

REPORT INFORMATION
  Report Type: 
  Country: None (occurrence: None)
  Receive Date: 20060807
  Receipt Date: 20060622
  Transmission Date: 20061208
  Serious: Yes (Other)
  Sender: FDA-Public Use
  Company Number: US-AVENTIS-200613530EU

PATIENT
  Age: 10 Year
  Sex: Female

DRUGS (3)
  1. FRISIUM [Suspect]
     Route: 048
     Dates: start: 20060101, end: 20060113
  2. FRISIUM [Suspect]
     Route: 048
     Dates: start: 20060114
  3. TEGRETOL [Concomitant]
     Indication: DRUG USE FOR UNKNOWN INDICATION
     Dates: start: 20060101

REACTIONS (2)
  - EXCESSIVE EYE BLINKING [None]
  - LOSS OF CONSCIOUSNESS [None]
